FAERS Safety Report 4958843-1 (Version None)
Quarter: 2006Q1

REPORT INFORMATION
  Report Type: 
  Country: None (occurrence: None)
  Receive Date: 20060324
  Receipt Date: 20060308
  Transmission Date: 20060701
  Serious: Yes (Other)
  Sender: FDA-Public Use
  Company Number: 439398

PATIENT
  Age: 56 Year
  Sex: Male

DRUGS (5)
  1. MYCOPHENOLATE MOFETIL [Suspect]
     Indication: LIVER TRANSPLANT REJECTION
     Dosage: 1000 MG 2 PER DAY
  2. MYCOPHENOLATE MOFETIL [Suspect]
     Indication: PROPHYLAXIS
     Dosage: 1000 MG 2 PER DAY
  3. TACROLIMUS (TACROLIMUS) [Suspect]
     Indication: LIVER TRANSPLANT REJECTION
     Dosage: 3 MG DAILY
  4. TACROLIMUS (TACROLIMUS) [Suspect]
     Indication: PROPHYLAXIS
     Dosage: 3 MG DAILY
  5. MEDICATIONS GENERIC [Concomitant]

REACTIONS (5)
  - ANAEMIA [None]
  - DRUG INTERACTION [None]
  - MYELODYSPLASTIC SYNDROME [None]
  - NEUTROPHIL PELGER-HUET ANOMALY PRESENT [None]
  - RENAL IMPAIRMENT [None]
